FAERS Safety Report 21571957 (Version 1)
Quarter: 2022Q4

REPORT INFORMATION
  Report Type: Spontaneous
  Country: TR (occurrence: TR)
  Receive Date: 20221109
  Receipt Date: 20221109
  Transmission Date: 20230113
  Serious: Yes (Death, Other)
  Sender: FDA-Public Use
  Company Number: TR-AMGEN-TURSP2022189888

PATIENT
  Age: 2 Month
  Sex: Female

DRUGS (3)
  1. BEVACIZUMAB [Suspect]
     Active Substance: BEVACIZUMAB
     Indication: Angiosarcoma
     Dosage: 10 MICROGRAM/KILOGRAM, Q2WK
     Route: 065
  2. IFOSFAMIDE [Concomitant]
     Active Substance: IFOSFAMIDE
     Indication: Angiosarcoma
     Dosage: 1.8 GRAM PER SQUARE METRE
     Route: 065
  3. ADRIAMYCIN [Concomitant]
     Active Substance: DOXORUBICIN HYDROCHLORIDE
     Indication: Angiosarcoma
     Dosage: 20 MILLIGRAM/SQ. METER
     Route: 065

REACTIONS (4)
  - Angiosarcoma [Fatal]
  - Obstructive airways disorder [Unknown]
  - Dysphagia [Unknown]
  - Off label use [Unknown]
